FAERS Safety Report 19690979 (Version 1)
Quarter: 2021Q3

REPORT INFORMATION
  Report Type: Spontaneous
  Country: US (occurrence: US)
  Receive Date: 20210812
  Receipt Date: 20210812
  Transmission Date: 20211014
  Serious: Yes (Hospitalization)
  Sender: FDA-Public Use
  Company Number: None

PATIENT
  Age: 61 Year
  Sex: Female

DRUGS (7)
  1. TALTZ [Suspect]
     Active Substance: IXEKIZUMAB
     Indication: PSORIASIS
     Dosage: 1 PEN Q4WK SQ
     Route: 058
     Dates: start: 20210119
  2. ESOMEPRA MAG [Concomitant]
  3. TRIAMCINOLON OIN [Concomitant]
  4. WELLBUTRIN SR [Concomitant]
     Active Substance: BUPROPION HYDROCHLORIDE
  5. TOVIAZ [Concomitant]
     Active Substance: FESOTERODINE FUMARATE
  6. HYOSCYAMINE. [Concomitant]
     Active Substance: HYOSCYAMINE
  7. ESZOPICLONE. [Concomitant]
     Active Substance: ESZOPICLONE

REACTIONS (3)
  - Fall [None]
  - Facial bones fracture [None]
  - Blood urine present [None]

NARRATIVE: CASE EVENT DATE: 20210811
